FAERS Safety Report 24268140 (Version 1)
Quarter: 2024Q3

REPORT INFORMATION
  Report Type: Spontaneous
  Country: US (occurrence: US)
  Receive Date: 20240830
  Receipt Date: 20240830
  Transmission Date: 20241017
  Serious: No
  Sender: MERCK
  Company Number: US-009507513-2408USA000524

PATIENT
  Sex: Female
  Weight: 61.224 kg

DRUGS (18)
  1. WINREVAIR [Suspect]
     Active Substance: SOTATERCEPT-CSRK
     Dosage: UNK
  2. TYLENOL [Concomitant]
     Active Substance: ACETAMINOPHEN
  3. BUMETANIDE [Concomitant]
     Active Substance: BUMETANIDE
  4. SODIUM CHLORIDE [Concomitant]
     Active Substance: SODIUM CHLORIDE
  5. PANTOPRAZOLE SODIUM [Concomitant]
     Active Substance: PANTOPRAZOLE SODIUM
  6. KETAMINE HYDROCHLORIDE [Concomitant]
     Active Substance: KETAMINE HYDROCHLORIDE
  7. LECITHIN [Concomitant]
     Active Substance: LECITHIN
  8. SILDENAFIL CITRATE [Concomitant]
     Active Substance: SILDENAFIL CITRATE
  9. VITAMINS [Concomitant]
     Active Substance: VITAMINS
  10. OPSUMIT [Concomitant]
     Active Substance: MACITENTAN
  11. CLONIDINE [Concomitant]
     Active Substance: CLONIDINE
  12. KETOPROFEN [Concomitant]
     Active Substance: KETOPROFEN
  13. OXYGEN [Concomitant]
     Active Substance: OXYGEN
  14. LIDOCAINE HYDROCHLORIDE [Concomitant]
     Active Substance: LIDOCAINE HYDROCHLORIDE
  15. GABAPENTIN [Concomitant]
     Active Substance: GABAPENTIN
  16. AMITRIPTYLINE [Concomitant]
     Active Substance: AMITRIPTYLINE
  17. POLOXAMER [Concomitant]
     Active Substance: POLOXAMER
  18. REMODULIN [Concomitant]
     Active Substance: TREPROSTINIL
     Dosage: DOSE :44 NG/KG/MIN, FREQ: CONTINOUS, PUMP RATE: 18 MCL PER HOUR,
     Route: 058
     Dates: start: 20240206

REACTIONS (1)
  - Adverse drug reaction [Unknown]
